FAERS Safety Report 4952419-8 (Version None)
Quarter: 2006Q1

REPORT INFORMATION
  Report Type: 
  Country: None (occurrence: None)
  Receive Date: 20060323
  Receipt Date: 20051205
  Transmission Date: 20060701
  Serious: Yes (Hospitalization, Disabling, Other)
  Sender: FDA-Public Use
  Company Number: US-MERCK-0512USA00833

PATIENT
  Age: 46 Year
  Sex: Male
  Weight: 93 kg

DRUGS (10)
  1. VIOXX [Suspect]
     Indication: BACK PAIN
     Route: 048
     Dates: start: 20000526, end: 20031101
  2. VIOXX [Suspect]
     Indication: ARTHRALGIA
     Route: 048
     Dates: start: 20000526, end: 20031101
  3. PROZAC [Concomitant]
     Indication: BACK DISORDER
     Route: 048
  4. TEQUIN [Concomitant]
     Route: 065
  5. TYLENOL (CAPLET) [Concomitant]
     Indication: ANALGESIC EFFECT
     Route: 048
  6. LIPITOR [Suspect]
     Indication: BLOOD CHOLESTEROL INCREASED
     Route: 048
     Dates: start: 20030817
  7. PROTONIX [Concomitant]
     Route: 048
  8. IBUPROFEN [Concomitant]
     Indication: PAIN
     Route: 048
  9. ASPIRIN [Concomitant]
     Indication: PROPHYLAXIS
     Route: 065
  10. [THERAPY UNSPECIFIED] [Concomitant]
     Route: 065

REACTIONS (15)
  - ACUTE CORONARY SYNDROME [None]
  - ANXIETY [None]
  - BLOOD CHOLESTEROL INCREASED [None]
  - CHEST PAIN [None]
  - CORONARY ARTERY DISEASE [None]
  - DIZZINESS [None]
  - DYSLIPIDAEMIA [None]
  - EXTRASYSTOLES [None]
  - HAEMORRHOIDS [None]
  - INJURY [None]
  - INTERVERTEBRAL DISC DISORDER [None]
  - LIVER FUNCTION TEST ABNORMAL [None]
  - PULMONARY EMBOLISM [None]
  - VENTRICULAR DYSFUNCTION [None]
  - VIRAL INFECTION [None]
